FAERS Safety Report 9785877 (Version 1)
Quarter: 2013Q4

REPORT INFORMATION
  Report Type: Spontaneous
  Country: CA (occurrence: None)
  Receive Date: 20131224
  Receipt Date: 20131224
  Transmission Date: 20140711
  Serious: Yes (Other)
  Sender: FDA-Public Use
  Company Number: CA-014112

PATIENT
  Age: 84 Year
  Sex: Male

DRUGS (7)
  1. FIRMAGON [Suspect]
     Indication: PROSTATE CANCER
     Route: 058
     Dates: start: 20130919
  2. PLAVIX [Concomitant]
  3. ASA [Concomitant]
  4. METOPROLOL [Concomitant]
  5. LASIX /00032601/ [Concomitant]
  6. FLOMAX /00889901/ [Concomitant]
  7. ZAROXOLYN [Concomitant]

REACTIONS (3)
  - Chills [None]
  - Feeling cold [None]
  - Pneumonia [None]
